FAERS Safety Report 16544089 (Version 1)
Quarter: 2019Q3

REPORT INFORMATION
  Report Type: Report from Study
  Country: GB (occurrence: GB)
  Receive Date: 20190709
  Receipt Date: 20190709
  Transmission Date: 20191004
  Serious: Yes (Hospitalization)
  Sender: FDA-Public Use
  Company Number: GB-EMD SERONO-9102982

PATIENT
  Sex: Female

DRUGS (2)
  1. REBIF [Suspect]
     Active Substance: INTERFERON BETA-1A
     Indication: MULTIPLE SCLEROSIS
     Dosage: PRE FILLED SYRINGE
     Dates: start: 20180924
  2. REBIF [Suspect]
     Active Substance: INTERFERON BETA-1A
     Dosage: STARTED AGAIN.
     Dates: start: 20190701

REACTIONS (1)
  - Hospitalisation [Unknown]
